FAERS Safety Report 20932461 (Version 1)
Quarter: 2022Q2

REPORT INFORMATION
  Report Type: Spontaneous
  Country: US (occurrence: US)
  Receive Date: 20220608
  Receipt Date: 20220608
  Transmission Date: 20220721
  Serious: No
  Sender: FDA-Public Use
  Company Number: US-PFIZER INC-202200804959

PATIENT
  Age: 65 Year
  Sex: Female
  Weight: 62.6 kg

DRUGS (3)
  1. PAXLOVID [Suspect]
     Active Substance: NIRMATRELVIR\RITONAVIR
     Indication: COVID-19 treatment
     Dosage: 3 DF, 2X/DAY (3 IN MORNING AND 3 AT NIGHT)
     Dates: start: 2022
  2. ROSUVASTATIN [Concomitant]
     Active Substance: ROSUVASTATIN
     Indication: Blood cholesterol
     Dosage: 10 MG
  3. TRIAMTERENE [Concomitant]
     Active Substance: TRIAMTERENE
     Indication: Hypertension
     Dosage: 37.5 MG

REACTIONS (2)
  - Night sweats [Unknown]
  - Insomnia [Unknown]

NARRATIVE: CASE EVENT DATE: 20220602
